FAERS Safety Report 10424468 (Version 2)
Quarter: 2015Q1

REPORT INFORMATION
  Report Type: Spontaneous
  Country: US (occurrence: None)
  Receive Date: 20140722
  Receipt Date: 20150120
  Transmission Date: 20150720
  Serious: No
  Sender: FDA-Public Use
  Company Number: AEGR000475

PATIENT
  Age: 65 Year
  Sex: Male
  Weight: 93.4 kg

DRUGS (8)
  1. JUXTAPID [Suspect]
     Active Substance: LOMITAPIDE MESYLATE
     Indication: TYPE IIA HYPERLIPIDAEMIA
     Route: 048
     Dates: start: 20140503, end: 20140531
  2. COUMADIN [Concomitant]
     Active Substance: WARFARIN SODIUM
  3. HYDROCODONE (HYDROCODONE BITARTRATE) [Concomitant]
  4. LOSARTAN (LOSARTAN POTASSIUM) [Concomitant]
  5. VERAPAMIL (VERAPAMIL HYDROCHLORIDE) (VERAPAMIL HYDROCHLORIDE) [Concomitant]
     Active Substance: VERAPAMIL HYDROCHLORIDE
  6. GABAPENTIN (GABAPENTIN) [Concomitant]
     Active Substance: GABAPENTIN
  7. OMEPRAZOLE (OMEPRAZOLE) [Concomitant]
     Active Substance: OMEPRAZOLE
  8. ZOLPIDEM [Concomitant]
     Active Substance: ZOLPIDEM\ZOLPIDEM TARTRATE

REACTIONS (9)
  - Dyspepsia [None]
  - Inappropriate schedule of drug administration [None]
  - Nausea [None]
  - Abdominal discomfort [None]
  - Weight decreased [None]
  - Labelled drug-drug interaction medication error [None]
  - Haematocrit abnormal [None]
  - Haemoglobin abnormal [None]
  - International normalised ratio increased [None]

NARRATIVE: CASE EVENT DATE: 20140501
